FAERS Safety Report 4527305-8 (Version None)
Quarter: 2004Q4

REPORT INFORMATION
  Report Type: 
  Country: None (occurrence: None)
  Receive Date: 20041130
  Receipt Date: 20040927
  Transmission Date: 20050328
  Serious: No
  Sender: FDA-Public Use
  Company Number: FABR-10799

PATIENT
  Sex: Male
  Weight: 50.9 kg

DRUGS (5)
  1. FABRAZYME [Suspect]
     Indication: FABRY'S DISEASE
     Dosage: 70 MG Q2WKS IV
     Route: 042
     Dates: start: 20040924
  2. TYLENOL (CAPLET) [Concomitant]
  3. BENADRYL [Concomitant]
  4. TEGRETOL [Concomitant]
  5. ACCUTANE [Concomitant]

REACTIONS (3)
  - ERYTHEMA [None]
  - PAIN [None]
  - PYREXIA [None]
